FAERS Safety Report 16817098 (Version 3)
Quarter: 2020Q2

REPORT INFORMATION
  Report Type: Spontaneous
  Country: US (occurrence: US)
  Receive Date: 20190917
  Receipt Date: 20200421
  Transmission Date: 20200713
  Serious: Yes (Other)
  Sender: FDA-Public Use
  Company Number: US-JNJFOC-20190905153

PATIENT
  Age: 70 Year
  Sex: Male
  Weight: 118.04 kg

DRUGS (4)
  1. INVEGA SUSTENNA [Suspect]
     Active Substance: PALIPERIDONE PALMITATE
  2. ASPRIN [Concomitant]
     Active Substance: ASPIRIN
  3. INVEGA SUSTENNA [Suspect]
     Active Substance: PALIPERIDONE PALMITATE
  4. INVEGA SUSTENNA [Suspect]
     Active Substance: PALIPERIDONE PALMITATE
     Indication: SCHIZOPHRENIA
     Dosage: 5045856401- PRESCRIPTION NUMBER
     Route: 030

REACTIONS (11)
  - Diverticulitis [Not Recovered/Not Resolved]
  - Diplopia [Recovered/Resolved]
  - Pain [Unknown]
  - Dyspnoea [Unknown]
  - Injection site bruising [Unknown]
  - Somatic delusion [Unknown]
  - Back pain [Recovered/Resolved]
  - Dysuria [Unknown]
  - Headache [Not Recovered/Not Resolved]
  - Arthralgia [Recovered/Resolved]
  - Pain in extremity [Recovered/Resolved]

NARRATIVE: CASE EVENT DATE: 20190828
